FAERS Safety Report 5573201-7 (Version None)
Quarter: 2007Q4

REPORT INFORMATION
  Report Type: 
  Country: None (occurrence: None)
  Receive Date: 20071224
  Receipt Date: 20071218
  Transmission Date: 20080405
  Serious: Yes (Death, Hospitalization)
  Sender: FDA-Public Use
  Company Number: JP-SANOFI-SYNTHELABO-F01200700500

PATIENT
  Sex: Male
  Weight: 46 kg

DRUGS (6)
  1. IRSOGLADINE MALEATE [Concomitant]
     Indication: GASTRITIS
  2. ARICEPT [Concomitant]
  3. HYPEN [Concomitant]
  4. CLOPIDOGREL [Suspect]
     Indication: LACUNAR INFARCTION
     Route: 048
     Dates: start: 20061013, end: 20070412
  5. CLOPIDOGREL [Suspect]
     Dosage: 75 MG
     Route: 048
     Dates: start: 20070529
  6. P MAGEN [Concomitant]
     Indication: GASTRITIS

REACTIONS (2)
  - GASTRIC CANCER [None]
  - GASTRIC HAEMORRHAGE [None]
